FAERS Safety Report 6842853-3 (Version None)
Quarter: 2010Q3

REPORT INFORMATION
  Report Type: 
  Country: None (occurrence: None)
  Receive Date: 20100709
  Receipt Date: 20100625
  Transmission Date: 20110219
  Serious: Yes (Other)
  Sender: FDA-Public Use
  Company Number: 1000014947

PATIENT
  Age: 28 Year
  Sex: Female
  Weight: 60 kg

DRUGS (3)
  1. ESCITALOPRAM [Suspect]
     Dosage: (500 MG, ONCE), ORAL; ORAL
     Route: 048
     Dates: start: 20100625, end: 20100625
  2. AMITRIPTYLINE (25 MILLIGRAM, TABLETS) [Suspect]
     Dosage: (1225 MG, ONCE), ORAL
     Route: 048
     Dates: start: 20100625, end: 20100625
  3. MELPERON (25 MILLIGRAM, TABLETS) [Suspect]
     Dosage: (1250 MG, ONCE), ORAL
     Route: 048
     Dates: start: 20100625, end: 20100625

REACTIONS (3)
  - MULTIPLE DRUG OVERDOSE INTENTIONAL [None]
  - SOPOR [None]
  - SUICIDE ATTEMPT [None]
